FAERS Safety Report 5233481-4 (Version None)
Quarter: 2007Q1

REPORT INFORMATION
  Report Type: 
  Country: None (occurrence: None)
  Receive Date: 20070208
  Receipt Date: 20070131
  Transmission Date: 20070707
  Serious: Yes (Hospitalization, Other)
  Sender: FDA-Public Use
  Company Number: DEWYE072609JAN07

PATIENT
  Sex: Male
  Weight: 90 kg

DRUGS (4)
  1. VENLAFAXINE HYDROCHLORIDE [Suspect]
     Dosage: OVERDOSE AMOUNT UNKNOWN
     Route: 048
     Dates: start: 20070108, end: 20070108
  2. CIPRAMIL [Suspect]
     Dosage: OVERDOSE AMOUNT UNKNOWN
     Route: 048
     Dates: start: 20070108, end: 20070108
  3. ZYPREXA [Suspect]
     Dosage: OVERDOSE AMOUNT UNKNOWN
     Route: 048
     Dates: start: 20070108, end: 20070108
  4. ABILIFY [Suspect]
     Dosage: OVERDOSE AMOUNT UNKNOWN
     Route: 048
     Dates: start: 20070108, end: 20070108

REACTIONS (7)
  - AGITATION [None]
  - BOWEL SOUNDS ABNORMAL [None]
  - DRY MOUTH [None]
  - INTENTIONAL OVERDOSE [None]
  - MIOSIS [None]
  - SUICIDE ATTEMPT [None]
  - TACHYCARDIA [None]
